FAERS Safety Report 13725922 (Version 1)
Quarter: 2017Q3

REPORT INFORMATION
  Report Type: Spontaneous
  Country: US (occurrence: US)
  Receive Date: 20170706
  Receipt Date: 20170706
  Transmission Date: 20171127
  Serious: Yes (Other)
  Sender: FDA-Public Use
  Company Number: None

PATIENT
  Age: 42 Year
  Sex: Male
  Weight: 72 kg

DRUGS (1)
  1. EQUATE SPORT SUNSCREEN BROAD SPECTRUM [Suspect]
     Active Substance: AVOBENZONE\HOMOSALATE\OCTISALATE\OCTOCRYLENE\OXYBENZONE
     Indication: SUNBURN

REACTIONS (3)
  - Chemical burn [None]
  - Device malfunction [None]
  - Application site burn [None]

NARRATIVE: CASE EVENT DATE: 20170705
